FAERS Safety Report 10239359 (Version 1)
Quarter: 2014Q2

REPORT INFORMATION
  Report Type: Spontaneous
  Country: BR (occurrence: BR)
  Receive Date: 20140616
  Receipt Date: 20140616
  Transmission Date: 20141212
  Serious: Yes (Other)
  Sender: FDA-Public Use
  Company Number: BR-JNJFOC-20140606185

PATIENT
  Sex: Female
  Weight: 84 kg

DRUGS (6)
  1. HALDOL [Suspect]
     Indication: BIPOLAR DISORDER
     Dosage: ONE OR TWO
     Route: 048
  2. HALDOL [Suspect]
     Indication: BIPOLAR DISORDER
     Dosage: ONE OR TWO
     Route: 048
  3. MIDAZOLAM [Interacting]
     Indication: SLEEP DISORDER THERAPY
     Route: 048
     Dates: start: 20140424
  4. DEPAKENE [Interacting]
     Indication: BIPOLAR DISORDER
     Route: 048
  5. AMPLICTIL [Interacting]
     Indication: BIPOLAR DISORDER
     Route: 065
  6. AMPLICTIL [Interacting]
     Indication: BIPOLAR DISORDER
     Route: 065

REACTIONS (5)
  - Hypothyroidism [Unknown]
  - Hypersensitivity [Unknown]
  - Agitation [Not Recovered/Not Resolved]
  - Drug interaction [Unknown]
  - Off label use [Unknown]
